FAERS Safety Report 4750972-0 (Version None)
Quarter: 2005Q3

REPORT INFORMATION
  Report Type: 
  Country: None (occurrence: None)
  Receive Date: 20050824
  Receipt Date: 20050812
  Transmission Date: 20060218
  Serious: Yes (Hospitalization)
  Sender: FDA-Public Use
  Company Number: FR-RB-1960-2005

PATIENT
  Age: 24 Year
  Sex: Male

DRUGS (2)
  1. BUPRENORPHINE HCL [Suspect]
     Indication: DRUG DEPENDENCE
     Route: 048
     Dates: start: 20040101, end: 20040701
  2. BUPRENORPHINE HCL [Suspect]
     Route: 048
     Dates: start: 20040701, end: 20050729

REACTIONS (1)
  - PANCREATITIS [None]
